FAERS Safety Report 4865968-8 (Version None)
Quarter: 2005Q4

REPORT INFORMATION
  Report Type: 
  Country: None (occurrence: None)
  Receive Date: 20051226
  Receipt Date: 20050906
  Transmission Date: 20060501
  Serious: Yes (Death, Hospitalization, Other)
  Sender: FDA-Public Use
  Company Number: PHNU2005DE03081

PATIENT
  Age: 69 Year
  Sex: Female
  Weight: 80 kg

DRUGS (3)
  1. SANDIMMUNE [Suspect]
     Indication: PYODERMA GANGRENOSUM
     Dosage: 75 MG, QD
     Route: 048
     Dates: start: 20050501, end: 20050901
  2. SANDIMMUNE [Suspect]
     Dosage: 37.5 MG, QD
     Route: 048
     Dates: start: 20050901
  3. SANDIMMUNE [Suspect]
     Route: 048

REACTIONS (6)
  - ASPARTATE AMINOTRANSFERASE INCREASED [None]
  - GAMMA-GLUTAMYLTRANSFERASE INCREASED [None]
  - LEFT VENTRICULAR FAILURE [None]
  - LIVER DISORDER [None]
  - LIVER FUNCTION TEST ABNORMAL [None]
  - PNEUMONIA [None]
